FAERS Safety Report 10519313 (Version 1)
Quarter: 2014Q4

REPORT INFORMATION
  Report Type: Spontaneous
  Country: US (occurrence: None)
  Receive Date: 20141014
  Receipt Date: 20141014
  Transmission Date: 20150528
  Serious: Yes (Disabling)
  Sender: FDA-Public Use
  Company Number: None

PATIENT
  Age: 62 Year
  Sex: Female
  Weight: 77.11 kg

DRUGS (1)
  1. LIPITOR [Suspect]
     Active Substance: ATORVASTATIN CALCIUM
     Dosage: 1 PILL A DAY ONCE DAILY TAKEN BY MOUTH
     Route: 048

REACTIONS (2)
  - Myalgia [None]
  - Abasia [None]

NARRATIVE: CASE EVENT DATE: 20140511
